FAERS Safety Report 9319816 (Version 1)
Quarter: 2013Q2

REPORT INFORMATION
  Report Type: Spontaneous
  Country: US (occurrence: US)
  Receive Date: 20130530
  Receipt Date: 20130530
  Transmission Date: 20140414
  Serious: No
  Sender: FDA-Public Use
  Company Number: US-009507513-1305USA017071

PATIENT
  Age: 11 Month
  Sex: Male
  Weight: 9.52 kg

DRUGS (2)
  1. MIRALAX [Suspect]
     Indication: CONSTIPATION
     Dosage: 8.5 G, BID
     Route: 048
     Dates: start: 2013
  2. MIRALAX [Suspect]
     Indication: MEDICAL OBSERVATION

REACTIONS (8)
  - Bowel movement irregularity [Not Recovered/Not Resolved]
  - Proctalgia [Not Recovered/Not Resolved]
  - Diarrhoea [Not Recovered/Not Resolved]
  - Faeces hard [Not Recovered/Not Resolved]
  - Weight gain poor [Not Recovered/Not Resolved]
  - Wrong technique in drug usage process [Unknown]
  - Drug administered to patient of inappropriate age [Unknown]
  - Off label use [Unknown]
